FAERS Safety Report 4967742-0 (Version None)
Quarter: 2006Q2

REPORT INFORMATION
  Report Type: 
  Country: None (occurrence: None)
  Receive Date: 20060410
  Receipt Date: 20051004
  Transmission Date: 20061013
  Serious: Yes (Hospitalization)
  Sender: FDA-Public Use
  Company Number: US-MERCK-0510USA03559

PATIENT
  Age: 58 Year
  Sex: Male
  Weight: 80 kg

DRUGS (3)
  1. VIOXX [Suspect]
     Indication: ARTHRITIS
     Route: 048
     Dates: start: 20010926, end: 20040326
  2. VIOXX [Suspect]
     Indication: ARTHRALGIA
     Route: 048
     Dates: start: 20010926, end: 20040326
  3. TYLENOL (CAPLET) [Concomitant]
     Route: 065

REACTIONS (2)
  - CEREBROVASCULAR ACCIDENT [None]
  - CORONARY ARTERY THROMBOSIS [None]
